FAERS Safety Report 7579837-6 (Version None)
Quarter: 2011Q2

REPORT INFORMATION
  Report Type: 
  Country: None (occurrence: None)
  Receive Date: 20110629
  Receipt Date: 20110617
  Transmission Date: 20111010
  Serious: Yes (Hospitalization, Other)
  Sender: FDA-Public Use
  Company Number: ES-ELI_LILLY_AND_COMPANY-ES201106005380

PATIENT
  Sex: Male
  Weight: 70 kg

DRUGS (7)
  1. ASPIRIN [Concomitant]
     Indication: DIABETES MELLITUS
     Dosage: 100 MG, QD
     Route: 048
  2. INNOLET [Concomitant]
     Indication: DIABETES MELLITUS
     Dosage: 20 IU, EVERY 12 HOURS
     Route: 058
  3. ACCUPRIL [Concomitant]
     Indication: HYPERTENSION
     Dosage: 20 MG, QD
     Route: 048
  4. EMULIQUEN LAXANTE [Concomitant]
     Indication: CONSTIPATION
     Dosage: 4.5 MG, QD
     Route: 048
     Dates: start: 20110615
  5. ALIMTA [Suspect]
     Indication: LUNG NEOPLASM MALIGNANT
     Dosage: UNK, WEEKLY (1/W)
     Route: 042
     Dates: start: 20110530, end: 20110530
  6. CHLORTHALIDONE [Concomitant]
     Indication: HYPERTENSION
     Dosage: 50 MG, QD
     Route: 048
  7. OMEPRAZOLE [Concomitant]
     Indication: PROPHYLAXIS
     Dosage: 20 MG, QD
     Route: 048

REACTIONS (7)
  - DYSPNOEA [None]
  - INTESTINAL OBSTRUCTION [None]
  - ABDOMINAL DISCOMFORT [None]
  - FATIGUE [None]
  - FLATULENCE [None]
  - CONSTIPATION [None]
  - DIARRHOEA [None]
